FAERS Safety Report 10421664 (Version 3)
Quarter: 2014Q3

REPORT INFORMATION
  Report Type: Spontaneous
  Country: US (occurrence: US)
  Receive Date: 20140901
  Receipt Date: 20140912
  Transmission Date: 20150326
  Serious: No
  Sender: FDA-Public Use
  Company Number: US-BIOGENIDEC-2014BI085827

PATIENT
  Sex: Male

DRUGS (1)
  1. TECFIDERA [Suspect]
     Active Substance: DIMETHYL FUMARATE
     Indication: MULTIPLE SCLEROSIS
     Route: 048
     Dates: start: 20140610, end: 201408

REACTIONS (10)
  - Intentional product misuse [Recovered/Resolved]
  - Migraine [Recovered/Resolved]
  - Eye disorder [Unknown]
  - Drug intolerance [Unknown]
  - Flushing [Recovered/Resolved]
  - Adverse reaction [Unknown]
  - Gastric disorder [Unknown]
  - Paraesthesia [Recovered/Resolved]
  - Abnormal sensation in eye [Unknown]
  - Fear [Unknown]

NARRATIVE: CASE EVENT DATE: 2014
